FAERS Safety Report 5139273-9 (Version None)
Quarter: 2006Q4

REPORT INFORMATION
  Report Type: 
  Country: None (occurrence: None)
  Receive Date: 20061023
  Receipt Date: 20061004
  Transmission Date: 20070319
  Serious: Yes (Death)
  Sender: FDA-Public Use
  Company Number: US200601001523

PATIENT
  Age: 45 Year
  Sex: Male
  Weight: 9.8 kg

DRUGS (11)
  1. ZYPREXA [Suspect]
     Indication: SCHIZOAFFECTIVE DISORDER
     Dosage: 7.5 MG, DAILY (1/D), 10 MG, DAILY (1/D), 7.5 MG, DAILY (1/D)
     Dates: start: 20030624, end: 20031216
  2. ZYPREXA [Suspect]
     Indication: SCHIZOAFFECTIVE DISORDER
     Dosage: 7.5 MG, DAILY (1/D), 10 MG, DAILY (1/D), 7.5 MG, DAILY (1/D)
     Dates: start: 20031216, end: 20040427
  3. ZYPREXA [Suspect]
     Indication: SCHIZOAFFECTIVE DISORDER
     Dosage: 7.5 MG, DAILY (1/D), 10 MG, DAILY (1/D), 7.5 MG, DAILY (1/D)
     Dates: start: 20010101
  4. ZYPREXA [Suspect]
     Indication: SCHIZOAFFECTIVE DISORDER
     Dosage: 7.5 MG, DAILY (1/D), 10 MG, DAILY (1/D), 7.5 MG, DAILY (1/D)
     Dates: start: 20040427
  5. RISPERIDONE [Concomitant]
  6. ESKALITH - SLOW RELEASE (LTHIUM CARBONATE) TABLET [Concomitant]
  7. TOPAMAX [Concomitant]
  8. HISTINEX HC (CHLORPHENAMINE MALEATE, HYDROCODONE BITARTRATE, PHENYLEPH [Concomitant]
  9. DEXTROAMPHETAMINE SULFATE [Concomitant]
  10. ADDERALL (AMFETAMINE ASPARTATE, AMFETAMINE SULFATE, DEXAMFETAMINE SACC [Concomitant]
  11. RITALIN [Concomitant]

REACTIONS (5)
  - DIABETES MELLITUS NON-INSULIN-DEPENDENT [None]
  - INSOMNIA [None]
  - PNEUMONIA [None]
  - SOMNOLENCE [None]
  - WEIGHT INCREASED [None]
